FAERS Safety Report 19065977 (Version 2)
Quarter: 2021Q2

REPORT INFORMATION
  Report Type: Spontaneous
  Country: KZ (occurrence: KZ)
  Receive Date: 20210327
  Receipt Date: 20210408
  Transmission Date: 20210717
  Serious: Yes (Hospitalization, Other)
  Sender: FDA-Public Use
  Company Number: KZ-ACCORD-221092

PATIENT
  Age: 8 Year
  Weight: 18 kg

DRUGS (2)
  1. METHOTREXATE. [Suspect]
     Active Substance: METHOTREXATE
     Indication: ACUTE LYMPHOCYTIC LEUKAEMIA
     Dosage: HDMTX IN A DOSE OF 5 G PER M2
  2. FOLINIC ACID [Concomitant]
     Active Substance: LEUCOVORIN
     Dosage: LEUCOVORIN (FA) RESCUE

REACTIONS (2)
  - Acute kidney injury [Recovered/Resolved]
  - Drug clearance decreased [Recovered/Resolved]
